FAERS Safety Report 17088776 (Version 1)
Quarter: 2019Q4

REPORT INFORMATION
  Report Type: Spontaneous
  Country: US (occurrence: US)
  Receive Date: 20191128
  Receipt Date: 20191128
  Transmission Date: 20200122
  Serious: No
  Sender: FDA-Public Use
  Company Number: US-ASTRAZENECA-2019SF56341

PATIENT
  Sex: Male

DRUGS (2)
  1. BYDUREON [Suspect]
     Active Substance: EXENATIDE
     Route: 065
  2. BYDUREON BCISE [Suspect]
     Active Substance: EXENATIDE
     Dosage: 2 MG
     Route: 065

REACTIONS (5)
  - Incorrect dose administered by product [Unknown]
  - Intentional device misuse [Unknown]
  - Device leakage [Unknown]
  - Injection site extravasation [Unknown]
  - Wrong technique in device usage process [Unknown]
